FAERS Safety Report 7946902-0 (Version None)
Quarter: 2011Q4

REPORT INFORMATION
  Report Type: 
  Country: None (occurrence: None)
  Receive Date: 20111129
  Receipt Date: 20111115
  Transmission Date: 20120403
  Serious: Yes (Other)
  Sender: FDA-Public Use
  Company Number: GB-WATSON-2011-19789

PATIENT
  Age: 30 Year
  Sex: Male
  Weight: 57 kg

DRUGS (5)
  1. VALPROATE SODIUM [Suspect]
     Indication: PRODUCT USED FOR UNKNOWN INDICATION
     Dosage: 2000 MG, UNK
     Dates: end: 20111028
  2. CLOZARIL [Suspect]
     Indication: SCHIZOPHRENIA
     Dosage: 575 MG, UNK
     Route: 048
     Dates: start: 20110329
  3. HALOPERIDOL [Concomitant]
     Indication: PRODUCT USED FOR UNKNOWN INDICATION
     Dosage: 10 MG, UNK
     Route: 048
  4. CITALOPRAM HYDROBROMIDE [Suspect]
     Indication: PRODUCT USED FOR UNKNOWN INDICATION
     Dosage: UNK
  5. DEPAKOTE [Concomitant]
     Indication: MOOD ALTERED
     Dosage: 1000 MG, DAILY
     Route: 048

REACTIONS (14)
  - AGGRESSION [None]
  - HEART RATE INCREASED [None]
  - FATIGUE [None]
  - GENDER IDENTITY DISORDER [None]
  - AGITATION [None]
  - COGNITIVE DISORDER [None]
  - GASTRITIS [None]
  - MENTAL IMPAIRMENT [None]
  - SEDATION [None]
  - DELIRIUM [None]
  - INAPPROPRIATE AFFECT [None]
  - CONVULSION [None]
  - PSYCHOTIC DISORDER [None]
  - VOMITING [None]
